FAERS Safety Report 6867402-5 (Version None)
Quarter: 2010Q3

REPORT INFORMATION
  Report Type: 
  Country: None (occurrence: None)
  Receive Date: 20100722
  Receipt Date: 20100714
  Transmission Date: 20110219
  Serious: Yes (Other)
  Sender: FDA-Public Use
  Company Number: US-JNJFOC-20100704540

PATIENT
  Sex: Female
  Weight: 68.04 kg

DRUGS (3)
  1. SIMPONI [Suspect]
     Indication: ANKYLOSING SPONDYLITIS
     Route: 058
  2. SYNTHROID [Concomitant]
     Indication: HYPOTHYROIDISM
  3. QUINAPRIL [Concomitant]
     Indication: HYPERTENSION

REACTIONS (1)
  - PRECANCEROUS CELLS PRESENT [None]
